FAERS Safety Report 7296252-3 (Version None)
Quarter: 2011Q1

REPORT INFORMATION
  Report Type: 
  Country: None (occurrence: None)
  Receive Date: 20110211
  Receipt Date: 20110211
  Transmission Date: 20110831
  Serious: Yes (Hospitalization)
  Sender: FDA-Public Use
  Company Number: None

PATIENT
  Sex: Female
  Weight: 62.72 kg

DRUGS (2)
  1. CARBOPLATIN [Suspect]
     Dosage: 455 MG
  2. TAXOL [Suspect]
     Dosage: 291 MG

REACTIONS (2)
  - GENITAL HERPES [None]
  - NEUTROPHIL COUNT ABNORMAL [None]
